FAERS Safety Report 11778442 (Version 4)
Quarter: 2016Q2

REPORT INFORMATION
  Report Type: Report from Study
  Country: US (occurrence: US)
  Receive Date: 20151125
  Receipt Date: 20160426
  Transmission Date: 20160815
  Serious: Yes (Other)
  Sender: FDA-Public Use
  Company Number: US-AMGEN-USASL2015122328

PATIENT
  Age: 50 Year
  Sex: Female

DRUGS (1)
  1. NPLATE [Suspect]
     Active Substance: ROMIPLOSTIM
     Indication: IMMUNE THROMBOCYTOPENIC PURPURA
     Dosage: UNK, Q2WK
     Route: 065
     Dates: start: 2012

REACTIONS (6)
  - Hepatic enzyme increased [Unknown]
  - Hypertension [Unknown]
  - Prothrombin time prolonged [Unknown]
  - Platelet count abnormal [Not Recovered/Not Resolved]
  - White blood cell count abnormal [Unknown]
  - International normalised ratio increased [Unknown]

NARRATIVE: CASE EVENT DATE: 2015
